FAERS Safety Report 5326922-5 (Version None)
Quarter: 2007Q2

REPORT INFORMATION
  Report Type: 
  Country: None (occurrence: None)
  Receive Date: 20070510
  Receipt Date: 20070426
  Transmission Date: 20071010
  Serious: Yes (Hospitalization)
  Sender: FDA-Public Use
  Company Number: CLOF-10507

PATIENT
  Age: 19 Year
  Sex: Male
  Weight: 74.2 kg

DRUGS (20)
  1. CLOFARABINE. MFR: GENZYME [Suspect]
     Indication: ACUTE LYMPHOCYTIC LEUKAEMIA
     Dosage: 78 MG QD X 5 IV
     Route: 042
     Dates: start: 20070411, end: 20070415
  2. ETOPOSIDE [Suspect]
     Indication: ACUTE LYMPHOCYTIC LEUKAEMIA
     Dosage: 196 MG QD X 5 IV
     Route: 042
     Dates: start: 20070411, end: 20070415
  3. CYCLOPHOSPHAMIDE [Suspect]
     Indication: ACUTE LYMPHOCYTIC LEUKAEMIA
     Dosage: 860 MG QD X 5 IV
     Route: 042
     Dates: start: 20070411, end: 20070415
  4. ALLOPURINOL [Concomitant]
  5. AMPHETAMINE AND DEXTROAMPHETAMINE SALTS [Concomitant]
  6. DAPSONE [Concomitant]
  7. DOCUSATE [Concomitant]
  8. ESCITALOPRAM OXALATE [Concomitant]
  9. LABETALOL HCL [Concomitant]
  10. RANITIDINE [Concomitant]
  11. MAGNESIUM HYDROXIDE TAB [Concomitant]
  12. CALCIUM CARBONATE [Concomitant]
  13. LANSOPRAZOLE [Concomitant]
  14. MAGNESIUM SULFATE [Concomitant]
  15. MESNA [Concomitant]
  16. SCOPOLAMINE [Concomitant]
  17. DIPHENHYDRAMINE HCL [Concomitant]
  18. METOCLOPRAMIDE [Concomitant]
  19. POLYETHYLENE GLYCOL [Concomitant]
  20. ZOLPIDEM [Concomitant]

REACTIONS (20)
  - ALANINE AMINOTRANSFERASE INCREASED [None]
  - ASPARTATE AMINOTRANSFERASE INCREASED [None]
  - BLOOD ALKALINE PHOSPHATASE INCREASED [None]
  - DISEASE RECURRENCE [None]
  - DYSPEPSIA [None]
  - FLUID IMBALANCE [None]
  - HAEMATOCHEZIA [None]
  - HEADACHE [None]
  - HYPERBILIRUBINAEMIA [None]
  - HYPOPHOSPHATAEMIA [None]
  - LETHARGY [None]
  - LYMPHADENOPATHY [None]
  - MALAISE [None]
  - NEUTROPENIA [None]
  - NEUTROPHILIA [None]
  - PLEURAL EFFUSION [None]
  - PNEUMONIA [None]
  - PULMONARY OEDEMA [None]
  - RESPIRATORY DISTRESS [None]
  - STAPHYLOCOCCAL INFECTION [None]
